FAERS Safety Report 24179395 (Version 1)
Quarter: 2024Q3

REPORT INFORMATION
  Report Type: Spontaneous
  Country: TW (occurrence: TW)
  Receive Date: 20240806
  Receipt Date: 20240806
  Transmission Date: 20241016
  Serious: Yes (Life-Threatening, Other)
  Sender: BAYER
  Company Number: TW-BAYER-2024A112791

PATIENT

DRUGS (8)
  1. STIVARGA [Suspect]
     Active Substance: REGORAFENIB MONOHYDRATE
     Indication: Metastatic neoplasm
     Dosage: 160MG ONCE PER DAY ON DAYS 1-21, EVERY 28 DAYS OR 80MG ONCE PER DAY ON DAYS 1-7, THEN 120MG ONCE PER
  2. PANITUMUMAB [Suspect]
     Active Substance: PANITUMUMAB
     Indication: Metastatic neoplasm
  3. BEVACIZUMAB [Suspect]
     Active Substance: BEVACIZUMAB
     Indication: Metastatic neoplasm
  4. LENVIMA [Suspect]
     Active Substance: LENVATINIB
     Indication: Metastatic neoplasm
     Dosage: 10 MG
  5. LONSURF [Suspect]
     Active Substance: TIPIRACIL HYDROCHLORIDE\TRIFLURIDINE
     Indication: Metastatic neoplasm
     Dosage: TWICE PER DAY ON DAYS 1-5 AND DAYS 8-12, WITH NO DOSES ON DAYS 6-7 OR DAYS 13-28
  6. IRINOTECAN [Suspect]
     Active Substance: IRINOTECAN
     Indication: Metastatic neoplasm
  7. OXALIPLATIN [Suspect]
     Active Substance: OXALIPLATIN
     Indication: Metastatic neoplasm
  8. FLUOROURACIL [Suspect]
     Active Substance: FLUOROURACIL
     Indication: Metastatic neoplasm

REACTIONS (15)
  - Colorectal cancer metastatic [Unknown]
  - Lipase increased [Unknown]
  - Alanine aminotransferase increased [Unknown]
  - Thrombocytopenia [Unknown]
  - Anaemia [Unknown]
  - Proteinuria [Unknown]
  - Hypertension [Unknown]
  - Leukopenia [Unknown]
  - Hypothyroidism [Unknown]
  - Decreased appetite [Unknown]
  - Drug intolerance [Unknown]
  - Aspartate aminotransferase increased [Unknown]
  - Blood creatinine increased [Unknown]
  - Weight decreased [Unknown]
  - Diarrhoea [Unknown]
